FAERS Safety Report 10897615 (Version 1)
Quarter: 2015Q1

REPORT INFORMATION
  Report Type: Spontaneous
  Country: IE (occurrence: None)
  Receive Date: 20150302
  Receipt Date: 20150302
  Transmission Date: 20150721
  Serious: Yes (Life-Threatening, Hospitalization, Disabling, Other)
  Sender: FDA-Public Use
  Company Number: None

PATIENT
  Age: 45 Year
  Sex: Male
  Weight: 85 kg

DRUGS (1)
  1. OXALIPLATIN. [Suspect]
     Active Substance: OXALIPLATIN
     Indication: NEOPLASM MALIGNANT
     Dosage: 1 LITRE, ONCE ONLY, INTO A VEIN

REACTIONS (5)
  - Thrombosis [None]
  - Tooth loss [None]
  - Syncope [None]
  - Nephrolithiasis [None]
  - Blindness [None]

NARRATIVE: CASE EVENT DATE: 20100630
